FAERS Safety Report 4607368-1 (Version None)
Quarter: 2005Q1

REPORT INFORMATION
  Report Type: 
  Country: None (occurrence: None)
  Receive Date: 20050309
  Receipt Date: 20050301
  Transmission Date: 20050727
  Serious: Yes (Other)
  Sender: FDA-Public Use
  Company Number: TUK2005A00021

PATIENT
  Age: 60 Year
  Sex: Female

DRUGS (2)
  1. ACTOS [Suspect]
     Dosage: SEE IMAGE
     Route: 048
     Dates: start: 20040701
  2. ACTOS [Suspect]
     Dosage: SEE IMAGE
     Route: 048
     Dates: start: 20050228

REACTIONS (2)
  - HEADACHE [None]
  - PAROTITIS [None]
